FAERS Safety Report 7271835-5 (Version None)
Quarter: 2011Q1

REPORT INFORMATION
  Report Type: 
  Country: None (occurrence: None)
  Receive Date: 20110126
  Receipt Date: 20110113
  Transmission Date: 20110831
  Serious: Yes (Hospitalization)
  Sender: FDA-Public Use
  Company Number: JP-004519

PATIENT
  Age: 18 Year
  Sex: Female

DRUGS (1)
  1. DESMOPRESSIN ACETATE [Suspect]
     Indication: DIABETES INSIPIDUS

REACTIONS (8)
  - HYPERNATRAEMIA [None]
  - QUADRIPARESIS [None]
  - MENTAL STATUS CHANGES [None]
  - OSMOTIC DEMYELINATION SYNDROME [None]
  - HYPONATRAEMIA [None]
  - DIABETES INSIPIDUS [None]
  - CONVULSION [None]
  - CONDITION AGGRAVATED [None]
